FAERS Safety Report 7272196-8 (Version None)
Quarter: 2011Q1

REPORT INFORMATION
  Report Type: 
  Country: None (occurrence: None)
  Receive Date: 20110131
  Receipt Date: 20110131
  Transmission Date: 20110831
  Serious: Yes (Hospitalization, Disabling)
  Sender: FDA-Public Use
  Company Number: None

PATIENT
  Age: 69 Year
  Sex: Female
  Weight: 54.6 kg

DRUGS (1)
  1. AMIODARONE HCL [Suspect]

REACTIONS (2)
  - HYPERTHYROIDISM [None]
  - THERAPEUTIC RESPONSE DECREASED [None]
